FAERS Safety Report 6259320-0 (Version None)
Quarter: 2009Q3

REPORT INFORMATION
  Report Type: 
  Country: None (occurrence: None)
  Receive Date: 20090702
  Receipt Date: 20090617
  Transmission Date: 20100115
  Serious: Yes (Death, Hospitalization)
  Sender: FDA-Public Use
  Company Number: 2008AL010968

PATIENT
  Age: 54 Year
  Sex: Male

DRUGS (1)
  1. DIGOXIN             USP (AMIDE) [Suspect]
     Indication: HEART RATE IRREGULAR
     Dosage: PO
     Route: 048

REACTIONS (14)
  - ANXIETY [None]
  - ASTHENIA [None]
  - ATRIAL FIBRILLATION [None]
  - CARDIAC FAILURE CONGESTIVE [None]
  - CARDIAC VALVE DISEASE [None]
  - DEHYDRATION [None]
  - DIARRHOEA [None]
  - ECONOMIC PROBLEM [None]
  - HYPERBILIRUBINAEMIA [None]
  - MULTIPLE INJURIES [None]
  - PAIN [None]
  - PULMONARY OEDEMA [None]
  - RESPIRATORY FAILURE [None]
  - THERAPEUTIC AGENT TOXICITY [None]
